FAERS Safety Report 18732515 (Version 1)
Quarter: 2021Q1

REPORT INFORMATION
  Report Type: Report from Study
  Country: None (occurrence: BR)
  Receive Date: 20210113
  Receipt Date: 20210113
  Transmission Date: 20210419
  Serious: Yes (Other)
  Sender: FDA-Public Use
  Company Number: BR-COEPTIS PHARMACEUTICALS, INC.-COE-2021-000003

PATIENT
  Age: 10 Year
  Sex: Female

DRUGS (7)
  1. PHENYTOIN. [Suspect]
     Active Substance: PHENYTOIN
  2. TRIMETHOPRIM?SULFAMETOXAZOL [Concomitant]
  3. FRISIUM [Concomitant]
     Active Substance: CLOBAZAM
  4. TRILEPTAL [Concomitant]
     Active Substance: OXCARBAZEPINE
  5. AMLODIPINE [Suspect]
     Active Substance: AMLODIPINE BESYLATE
  6. CAPTOPRIL. [Concomitant]
     Active Substance: CAPTOPRIL
  7. CYCLOSPORINE. [Suspect]
     Active Substance: CYCLOSPORINE

REACTIONS (3)
  - Nodule [Recovering/Resolving]
  - Gingival hypertrophy [Recovering/Resolving]
  - Oral disorder [Recovering/Resolving]
